FAERS Safety Report 15041033 (Version 1)
Quarter: 2018Q2

REPORT INFORMATION
  Report Type: Spontaneous
  Country: US (occurrence: US)
  Receive Date: 20180621
  Receipt Date: 20180621
  Transmission Date: 20180711
  Serious: No
  Sender: FDA-Public Use
  Company Number: US-BIOGEN-2018BI00596132

PATIENT
  Age: 57 Year
  Sex: Male

DRUGS (2)
  1. ZINBRYTA [Suspect]
     Active Substance: DACLIZUMAB
     Indication: MULTIPLE SCLEROSIS
     Route: 058
     Dates: start: 201703, end: 201802
  2. ZINBRYTA [Suspect]
     Active Substance: DACLIZUMAB
     Route: 065
     Dates: end: 20180202

REACTIONS (1)
  - Hypersensitivity [Not Recovered/Not Resolved]

NARRATIVE: CASE EVENT DATE: 201805
